FAERS Safety Report 5325878-9 (Version None)
Quarter: 2007Q2

REPORT INFORMATION
  Report Type: 
  Country: None (occurrence: None)
  Receive Date: 20070220
  Receipt Date: 20061221
  Transmission Date: 20071010
  Serious: No
  Sender: FDA-Public Use
  Company Number: WAES 0612USA03660

PATIENT
  Age: 61 Year
  Sex: Male

DRUGS (2)
  1. JANUVIA [Suspect]
     Indication: DIABETES MELLITUS NON-INSULIN-DEPENDENT
     Dosage: 100 MG/DAILY/PO
     Route: 048
     Dates: start: 20061121, end: 20061220
  2. AVELOX [Concomitant]

REACTIONS (3)
  - HAEMATOMA [None]
  - OEDEMA PERIPHERAL [None]
  - WEIGHT INCREASED [None]
